FAERS Safety Report 9336501 (Version 2)
Quarter: 2013Q2

REPORT INFORMATION
  Report Type: Spontaneous
  Country: FR (occurrence: FR)
  Receive Date: 20130607
  Receipt Date: 20130625
  Transmission Date: 20140414
  Serious: No
  Sender: FDA-Public Use
  Company Number: FR-EISAI INC-E7389-03875-SPO-FR

PATIENT
  Age: 34 Year
  Sex: Female
  Weight: 89 kg

DRUGS (2)
  1. HALAVEN [Suspect]
     Indication: BREAST CANCER METASTATIC
     Route: 041
     Dates: start: 20130521
  2. FERROUS INJECTION [Suspect]
     Indication: ANAEMIA
     Route: 042
     Dates: start: 20130521, end: 20130521

REACTIONS (2)
  - Extravasation [Recovered/Resolved]
  - Oedema [None]
